FAERS Safety Report 6174320-7 (Version None)
Quarter: 2009Q2

REPORT INFORMATION
  Report Type: 
  Country: None (occurrence: None)
  Receive Date: 20090430
  Receipt Date: 20080515
  Transmission Date: 20091009
  Serious: No
  Sender: FDA-Public Use
  Company Number: US-ASTRAZENECA-2008UW10029

PATIENT
  Age: 65 Year
  Sex: Female
  Weight: 63.5 kg

DRUGS (3)
  1. NEXIUM [Suspect]
     Route: 048
     Dates: start: 20080512
  2. PLAVIX [Concomitant]
  3. OTHER PILLS [Concomitant]

REACTIONS (2)
  - FEELING ABNORMAL [None]
  - HYPERTENSION [None]
